FAERS Safety Report 4391450-0 (Version None)
Quarter: 2004Q3

REPORT INFORMATION
  Report Type: 
  Country: None (occurrence: None)
  Receive Date: 20040701
  Receipt Date: 20040623
  Transmission Date: 20050211
  Serious: Yes (Other)
  Sender: FDA-Public Use
  Company Number: US-JNJFOC-20040607445

PATIENT
  Age: 28 Year
  Sex: Female
  Weight: 99.7913 kg

DRUGS (5)
  1. ORTHO EVRA [Suspect]
     Indication: CONTRACEPTION
     Dosage: 1 DOSE(S), 3 IN 4 WEEKS, TRANSDERMAL
     Route: 062
     Dates: start: 20040530
  2. ALLEGRA (FEXOFENADINE HYDROCHLORIDE) TABLETS [Concomitant]
  3. WOMEN'S ONE A DAY (VITAMINS NOS) TABLETS [Concomitant]
  4. FISH OIL (FISH OIL) TABLETS [Concomitant]
  5. CALCIUM (CALCIUM) TABLETS [Concomitant]

REACTIONS (3)
  - METRORRHAGIA [None]
  - OLIGOMENORRHOEA [None]
  - TONSILLECTOMY [None]
